FAERS Safety Report 17131133 (Version 1)
Quarter: 2019Q4

REPORT INFORMATION
  Report Type: Spontaneous
  Country: IT (occurrence: IT)
  Receive Date: 20191209
  Receipt Date: 20191209
  Transmission Date: 20200122
  Serious: Yes (Hospitalization)
  Sender: FDA-Public Use
  Company Number: IT-ALLERGAN-1949545US

PATIENT
  Sex: Male

DRUGS (12)
  1. COLISTIMETATO DE SODIO GES [Suspect]
     Active Substance: COLISTIMETHATE SODIUM
     Indication: PNEUMONIA PSEUDOMONAL
     Dosage: 9MILLION UNITS, QD
     Route: 042
     Dates: start: 20191006
  2. SMOFKABIVEN EF [Concomitant]
  3. URBASON SOLUB [Concomitant]
     Active Substance: METHYLPREDNISOLONE SODIUM SUCCINATE
  4. DIPEPTIVEN [Concomitant]
     Active Substance: ALANYL GLUTAMINE
  5. CEFTAZIDIME;AVIBACTAM - BP [Suspect]
     Active Substance: AVIBACTAM SODIUM\CEFTAZIDIME
     Indication: PNEUMONIA PSEUDOMONAL
     Dosage: 2 DF, QD
     Route: 042
     Dates: start: 20191002, end: 20191022
  6. TYGACIL [Suspect]
     Active Substance: TIGECYCLINE
     Indication: BACTERIAL INFECTION
     Dosage: 2 DF, QD
     Route: 042
     Dates: start: 20191008, end: 20191022
  7. CLEXANE [Concomitant]
     Active Substance: ENOXAPARIN SODIUM
  8. FLUIMUCIL [Concomitant]
     Active Substance: ACETYLCYSTEINE
  9. PREFOLIC [Concomitant]
     Active Substance: LEUCOVORIN CALCIUM
  10. FERLIXIT [Concomitant]
     Active Substance: SODIUM FERRIC GLUCONATE COMPLEX
  11. MEROPENEM. [Suspect]
     Active Substance: MEROPENEM
     Indication: PNEUMONIA PSEUDOMONAL
     Dosage: 6 DF, QD
     Route: 042
     Dates: start: 20191007, end: 20191022
  12. EPREX [Concomitant]
     Active Substance: ERYTHROPOIETIN

REACTIONS (1)
  - Dysbiosis [Recovering/Resolving]

NARRATIVE: CASE EVENT DATE: 20191022
